FAERS Safety Report 22139103 (Version 4)
Quarter: 2024Q4

REPORT INFORMATION
  Report Type: Report from Study
  Country: US (occurrence: US)
  Receive Date: 20230327
  Receipt Date: 20241003
  Transmission Date: 20250115
  Serious: No
  Sender: NOVARTIS
  Company Number: US-002147023-NVSC2023US070146

PATIENT
  Sex: Female

DRUGS (1)
  1. KISQALI [Suspect]
     Active Substance: RIBOCICLIB
     Indication: Product used for unknown indication
     Dosage: 600 MG (FOR 3 WEEKS. ON 1ST WEEK OFF)
     Route: 048
     Dates: start: 20230320

REACTIONS (6)
  - Endometrial thickening [Unknown]
  - Pain [Unknown]
  - Nausea [Unknown]
  - Fatigue [Not Recovered/Not Resolved]
  - Benign uterine neoplasm [Unknown]
  - Constipation [Unknown]
